FAERS Safety Report 10751155 (Version 2)
Quarter: 2015Q1

REPORT INFORMATION
  Report Type: Spontaneous
  Country: US (occurrence: US)
  Receive Date: 20150130
  Receipt Date: 20150204
  Transmission Date: 20150721
  Serious: Yes (Other)
  Sender: FDA-Public Use
  Company Number: US-PFIZER INC-2015039509

PATIENT
  Sex: Female

DRUGS (1)
  1. LYRICA [Suspect]
     Active Substance: PREGABALIN
     Dosage: UNK

REACTIONS (6)
  - Paraesthesia [Unknown]
  - Dyskinesia [Unknown]
  - Burning sensation [Unknown]
  - Neoplasm [Unknown]
  - Pain in extremity [Unknown]
  - Insomnia [Unknown]
